FAERS Safety Report 5510850-6 (Version None)
Quarter: 2007Q4

REPORT INFORMATION
  Report Type: 
  Country: None (occurrence: None)
  Receive Date: 20071107
  Receipt Date: 20071029
  Transmission Date: 20080405
  Serious: Yes (Hospitalization, Other)
  Sender: FDA-Public Use
  Company Number: 07H-163-0313382-00

PATIENT
  Age: 69 Year
  Sex: Male

DRUGS (2)
  1. SODIUM CHLORIDE [Suspect]
     Indication: TRANSFUSION
     Dosage: 250 ML, TWICE,
     Dates: start: 20070914
  2. BLOOD TRANSFUSION (BLOOD TRANSFUSION, AUXILIARY PRODUCTS) [Suspect]
     Indication: TRANSFUSION
     Dosage: 250 ML, TWICE
     Dates: start: 20070914

REACTIONS (2)
  - INCORRECT DRUG ADMINISTRATION RATE [None]
  - RESPIRATORY DISTRESS [None]
